FAERS Safety Report 10723983 (Version 1)
Quarter: 2015Q1

REPORT INFORMATION
  Report Type: Spontaneous
  Country: US (occurrence: None)
  Receive Date: 20150116
  Receipt Date: 20150116
  Transmission Date: 20150721
  Serious: Yes (Other)
  Sender: FDA-Public Use
  Company Number: None

PATIENT
  Age: 65 Year
  Sex: Female
  Weight: 81.65 kg

DRUGS (1)
  1. SHINGLES SHOT [Suspect]
     Active Substance: VARICELLA-ZOSTER VIRUS STRAIN OKA/MERCK LIVE ANTIGEN

REACTIONS (6)
  - Swelling [None]
  - Induration [None]
  - Erythema [None]
  - Skin discolouration [None]
  - Arthralgia [None]
  - Asthenia [None]

NARRATIVE: CASE EVENT DATE: 20141205
